FAERS Safety Report 8006300-0 (Version None)
Quarter: 2011Q4

REPORT INFORMATION
  Report Type: 
  Country: None (occurrence: None)
  Receive Date: 20111226
  Receipt Date: 20111212
  Transmission Date: 20120403
  Serious: Yes (Other)
  Sender: FDA-Public Use
  Company Number: PHHY2011CA51112

PATIENT

DRUGS (9)
  1. ADALAT [Concomitant]
  2. CALCIUM CHANNEL BLOCKERS [Concomitant]
  3. CRESTOR [Concomitant]
  4. ALISKIREN [Suspect]
     Dosage: 300 MG
  5. MICARDIS [Concomitant]
  6. BISOPROLOL [Concomitant]
     Dosage: 10 MG
  7. ALISKIREN [Suspect]
     Indication: HYPERTENSION
     Dosage: 150 MG DAILY
     Route: 048
     Dates: start: 20100309, end: 20110601
  8. ACE INHIBITOR NOS [Concomitant]
  9. DIURETICS [Concomitant]

REACTIONS (2)
  - DRUG INEFFECTIVE [None]
  - HYPERTENSION [None]
